FAERS Safety Report 5012597-1 (Version None)
Quarter: 2006Q2

REPORT INFORMATION
  Report Type: 
  Country: None (occurrence: None)
  Receive Date: 20060410
  Receipt Date: 20050823
  Transmission Date: 20061013
  Serious: Yes (Congenital Anomaly)
  Sender: FDA-Public Use
  Company Number: 05P-163-0309111-00

PATIENT
  Sex: Male
  Weight: 3.3566 kg

DRUGS (1)
  1. DEPAKOTE [Suspect]
     Indication: DRUG EXPOSURE DURING PREGNANCY

REACTIONS (3)
  - PENIS DISORDER [None]
  - SPINAL DISORDER [None]
  - SYRINGOMYELIA [None]
